FAERS Safety Report 4753320-5 (Version None)
Quarter: 2005Q3

REPORT INFORMATION
  Report Type: 
  Country: None (occurrence: None)
  Receive Date: 20050824
  Receipt Date: 20050812
  Transmission Date: 20060218
  Serious: Yes (Hospitalization, Other)
  Sender: FDA-Public Use
  Company Number: KII-2005-0017975

PATIENT
  Age: 37 Year
  Sex: Male

DRUGS (10)
  1. OXYCONTIN [Suspect]
     Dosage: ORAL
     Route: 048
  2. CARISOPRODOL [Suspect]
     Dosage: ORAL
     Route: 048
  3. CLONIDINE [Suspect]
     Dosage: ORAL
     Route: 048
  4. SSRI () [Suspect]
     Dosage: ORAL
     Route: 048
  5. PREDNISONE [Suspect]
     Dosage: ORAL
     Route: 048
  6. ACETAMINOPHEN AND HYDROCODONE BITARTRATE [Suspect]
  7. VALPROIC ACID [Suspect]
     Dosage: ORAL
     Route: 048
  8. BENZODIAZEPINE DERIVATIVES () [Suspect]
     Dosage: ORAL
     Route: 048
  9. CORTICOSTEROIDS () [Suspect]
     Dosage: ORAL
     Route: 048
  10. ACETYLSALICYLIC ACID SRT [Suspect]

REACTIONS (11)
  - AGITATION [None]
  - AREFLEXIA [None]
  - BLOOD PRESSURE INCREASED [None]
  - COMA [None]
  - DEPRESSED LEVEL OF CONSCIOUSNESS [None]
  - DRUG SCREEN POSITIVE [None]
  - ELECTROCARDIOGRAM QT PROLONGED [None]
  - HEART RATE DECREASED [None]
  - HYPERHIDROSIS [None]
  - PUPILLARY REFLEX IMPAIRED [None]
  - SOMNOLENCE [None]
